FAERS Safety Report 6527556-7 (Version None)
Quarter: 2010Q1

REPORT INFORMATION
  Report Type: 
  Country: None (occurrence: None)
  Receive Date: 20100105
  Receipt Date: 20091228
  Transmission Date: 20100710
  Serious: Yes (Other)
  Sender: FDA-Public Use
  Company Number: DE-ABBOTT-09P-062-0617084-00

PATIENT
  Sex: Female
  Weight: 52 kg

DRUGS (2)
  1. HUMIRA [Suspect]
     Indication: PSORIATIC ARTHROPATHY
     Route: 058
     Dates: start: 20090701
  2. PANDEMRIX [Concomitant]
     Indication: PROPHYLAXIS
     Dosage: 3.75MG
     Dates: start: 20091114

REACTIONS (4)
  - ACUTE DISSEMINATED ENCEPHALOMYELITIS [None]
  - DEMYELINATION [None]
  - HYPOAESTHESIA [None]
  - MYELITIS TRANSVERSE [None]
